FAERS Safety Report 12717796 (Version 4)
Quarter: 2017Q4

REPORT INFORMATION
  Report Type: Spontaneous
  Country: NO (occurrence: NO)
  Receive Date: 20160906
  Receipt Date: 20171222
  Transmission Date: 20180320
  Serious: Yes (Life-Threatening, Other)
  Sender: FDA-Public Use
  Company Number: NO-PFIZER INC-2016410420

PATIENT
  Age: 18 Year
  Sex: Male
  Weight: 71 kg

DRUGS (7)
  1. NEURONTIN [Concomitant]
     Active Substance: GABAPENTIN
     Indication: PAIN
     Dosage: 300 MG, 3X/DAY
     Route: 048
     Dates: start: 201604
  2. LEUCOVORIN. [Concomitant]
     Active Substance: LEUCOVORIN
     Indication: DRUG CLEARANCE DECREASED
     Dosage: UNK
     Route: 065
     Dates: start: 20160713, end: 20160713
  3. OXYCODONE ACTAVIS [Concomitant]
     Active Substance: OXYCODONE HYDROCHLORIDE
     Indication: PAIN
     Dosage: 5 MG, 2X/DAY
     Route: 048
     Dates: start: 201604
  4. METHOTREXATE SODIUM. [Suspect]
     Active Substance: METHOTREXATE SODIUM
     Indication: OSTEOSARCOMA
     Dosage: 22900 MG, (HIGH DOSE)
     Route: 042
     Dates: start: 20160712, end: 20160712
  5. VORAXAZE [Suspect]
     Active Substance: GLUCARPIDASE
     Indication: TOXICITY TO VARIOUS AGENTS
     Dosage: 2000 IU, SINGLE
     Route: 065
     Dates: start: 20160713, end: 20160713
  6. DEXAMETHASON [Concomitant]
     Active Substance: DEXAMETHASONE
     Dosage: 12 MG, 1X/DAY
     Route: 048
     Dates: start: 20160712, end: 20160715
  7. APREPITANT. [Concomitant]
     Active Substance: APREPITANT
     Dosage: 8 MG, 2X/DAY
     Route: 048
     Dates: start: 20160712, end: 20160715

REACTIONS (5)
  - Rebound effect [Recovered/Resolved]
  - Alanine aminotransferase increased [Unknown]
  - Aspartate aminotransferase increased [Unknown]
  - Drug clearance decreased [Unknown]
  - Renal failure [Recovered/Resolved]

NARRATIVE: CASE EVENT DATE: 20160713
